FAERS Safety Report 25055623 (Version 1)
Quarter: 2025Q1

REPORT INFORMATION
  Report Type: Spontaneous
  Country: JP (occurrence: JP)
  Receive Date: 20250309
  Receipt Date: 20250309
  Transmission Date: 20250409
  Serious: Yes (Hospitalization)
  Sender: MERCK SHARP & DOHME LLC
  Company Number: JP-009507513-2260787

PATIENT
  Age: 65 Year
  Sex: Male

DRUGS (1)
  1. PEMBROLIZUMAB [Suspect]
     Active Substance: PEMBROLIZUMAB
     Indication: Oesophageal carcinoma
     Route: 065

REACTIONS (5)
  - Myasthenia gravis [Recovering/Resolving]
  - Myocarditis [Unknown]
  - Myositis [Recovering/Resolving]
  - Atrioventricular block complete [Unknown]
  - Pneumonia aspiration [Unknown]
